FAERS Safety Report 20454820 (Version 1)
Quarter: 2022Q1

REPORT INFORMATION
  Report Type: Spontaneous
  Country: IN (occurrence: IN)
  Receive Date: 20220210
  Receipt Date: 20220210
  Transmission Date: 20220423
  Serious: Yes (Death)
  Sender: FDA-Public Use
  Company Number: IN-PFIZER INC-2020117255

PATIENT
  Age: 23 Year
  Sex: Male

DRUGS (1)
  1. SUTENT [Suspect]
     Active Substance: SUNITINIB MALATE
     Indication: Renal cancer metastatic
     Dosage: 50 MG, ONCE DAILY, 2 WEEKS ON AND 1 WEEK OFF
     Route: 048
     Dates: start: 20200309

REACTIONS (1)
  - Death [Fatal]
